FAERS Safety Report 6915821-0 (Version None)
Quarter: 2010Q3

REPORT INFORMATION
  Report Type: 
  Country: None (occurrence: None)
  Receive Date: 20100810
  Receipt Date: 20100512
  Transmission Date: 20110219
  Serious: No
  Sender: FDA-Public Use
  Company Number: A0859396A

PATIENT
  Age: 47 Year
  Sex: Female

DRUGS (2)
  1. PAXIL [Suspect]
     Indication: DEPRESSION
     Dosage: 65MG PER DAY
     Route: 048
     Dates: start: 19950101
  2. FISH OIL [Concomitant]

REACTIONS (1)
  - FEELING JITTERY [None]
